FAERS Safety Report 12964021 (Version 2)
Quarter: 2016Q4

REPORT INFORMATION
  Report Type: Spontaneous
  Country: SI (occurrence: SI)
  Receive Date: 20161122
  Receipt Date: 20161226
  Transmission Date: 20170207
  Serious: Yes (Death, Hospitalization, Other)
  Sender: FDA-Public Use
  Company Number: PHHY2016SI149193

PATIENT
  Age: 56 Year
  Sex: Male

DRUGS (11)
  1. XALKORI [Suspect]
     Active Substance: CRIZOTINIB
     Indication: NON-SMALL CELL LUNG CANCER METASTATIC
     Dosage: 2 DF, UNK
     Route: 065
     Dates: end: 201605
  2. NOLPAZA [Concomitant]
     Active Substance: PANTOPRAZOLE SODIUM
     Indication: PRODUCT USED FOR UNKNOWN INDICATION
     Dosage: 40 MG, UNK
     Route: 065
     Dates: end: 201605
  3. ZYKADIA [Suspect]
     Active Substance: CERITINIB
     Dosage: 450 MG, QD
     Route: 048
  4. SEVREDOL [Concomitant]
     Active Substance: MORPHINE
     Indication: PRODUCT USED FOR UNKNOWN INDICATION
     Dosage: 20 MG, PRN
     Route: 065
  5. CHOLECALCIFEROL [Concomitant]
     Active Substance: CHOLECALCIFEROL
     Indication: PRODUCT USED FOR UNKNOWN INDICATION
     Dosage: 50 GTT, QW
     Route: 065
  6. XGEVA [Concomitant]
     Active Substance: DENOSUMAB
     Indication: PRODUCT USED FOR UNKNOWN INDICATION
     Dosage: 120 MG, EVERY 4 WEEKS
     Route: 065
  7. LACTECON [Concomitant]
     Indication: PRODUCT USED FOR UNKNOWN INDICATION
     Dosage: UNK UNK, PRN
     Route: 065
  8. DUROGESIC [Concomitant]
     Active Substance: FENTANYL
     Indication: PRODUCT USED FOR UNKNOWN INDICATION
     Dosage: 150 UG/HR, UNK
     Route: 065
  9. VEROLAX [Concomitant]
     Indication: PRODUCT USED FOR UNKNOWN INDICATION
     Dosage: UNK UNK, PRN
     Route: 065
  10. POTASSIUM CARBONATE [Concomitant]
     Active Substance: POTASSIUM CARBONATE
     Indication: PRODUCT USED FOR UNKNOWN INDICATION
     Dosage: 2 G, UNK
     Route: 065
  11. ZYKADIA [Suspect]
     Active Substance: CERITINIB
     Indication: NON-SMALL CELL LUNG CANCER
     Dosage: 600 MG, QD
     Route: 048
     Dates: start: 20160607, end: 20161019

REACTIONS (17)
  - Spinal pain [Unknown]
  - Non-small cell lung cancer [Fatal]
  - Vomiting [Unknown]
  - Dizziness [Unknown]
  - Pyrexia [Unknown]
  - Pelvic pain [Unknown]
  - Altered state of consciousness [Unknown]
  - Metastases to meninges [Fatal]
  - Dysphagia [Unknown]
  - Metastases to central nervous system [Unknown]
  - Central nervous system lesion [Unknown]
  - Malignant neoplasm progression [Fatal]
  - General physical health deterioration [Unknown]
  - Chest pain [Not Recovered/Not Resolved]
  - Headache [Unknown]
  - Metastases to liver [Unknown]
  - Gait disturbance [Unknown]

NARRATIVE: CASE EVENT DATE: 201605
